FAERS Safety Report 9442498 (Version 1)
Quarter: 2013Q3

REPORT INFORMATION
  Report Type: Spontaneous
  Country: US (occurrence: None)
  Receive Date: 20130805
  Receipt Date: 20130805
  Transmission Date: 20140515
  Serious: Yes (Hospitalization)
  Sender: FDA-Public Use
  Company Number: None

PATIENT
  Age: 90 Year
  Sex: Female
  Weight: 77 kg

DRUGS (1)
  1. WARFARIN [Suspect]
     Dosage: 1 MG DAILY ON SUN, TUES, THURS PO
     Route: 048

REACTIONS (6)
  - Pneumonia aspiration [None]
  - International normalised ratio increased [None]
  - Decreased appetite [None]
  - Vomiting [None]
  - Pyrexia [None]
  - Hypophagia [None]
